FAERS Safety Report 18554649 (Version 3)
Quarter: 2025Q1

REPORT INFORMATION
  Report Type: Spontaneous
  Country: DE (occurrence: DE)
  Receive Date: 20201127
  Receipt Date: 20250120
  Transmission Date: 20250409
  Serious: Yes (Death, Congenital Anomaly)
  Sender: TEVA
  Company Number: DE-EMBRYOTOX-202010108

PATIENT
  Sex: Female
  Weight: 0.15 kg

DRUGS (3)
  1. RAMIPRIL [Suspect]
     Active Substance: RAMIPRIL
     Indication: Hypertension
     Route: 064
     Dates: start: 20190819, end: 20191221
  2. GILENYA [Suspect]
     Active Substance: FINGOLIMOD HYDROCHLORIDE
     Indication: Multiple sclerosis
     Route: 064
     Dates: start: 20190819, end: 20191221
  3. LEVOTHYROXINE SODIUM [Concomitant]
     Active Substance: LEVOTHYROXINE SODIUM
     Indication: Autoimmune thyroiditis
     Route: 064
     Dates: start: 20190819, end: 20191221

REACTIONS (5)
  - Hypoplastic left heart syndrome [Fatal]
  - Mitral valve atresia [Not Recovered/Not Resolved]
  - Foetal exposure during pregnancy [Unknown]
  - Aortic valve stenosis [Not Recovered/Not Resolved]
  - Bicuspid aortic valve [Not Recovered/Not Resolved]
